FAERS Safety Report 16899756 (Version 1)
Quarter: 2019Q4

REPORT INFORMATION
  Report Type: Spontaneous
  Country: AT (occurrence: AT)
  Receive Date: 20191009
  Receipt Date: 20191009
  Transmission Date: 20200122
  Serious: Yes (Other)
  Sender: FDA-Public Use
  Company Number: AT-009507513-1908AUT009006

PATIENT
  Age: 56 Year
  Sex: Male

DRUGS (3)
  1. CANDESARTAN. [Concomitant]
     Active Substance: CANDESARTAN
     Indication: HYPERTENSION
     Dosage: 1-0-0
     Dates: start: 201811
  2. SEGLUROMET [Suspect]
     Active Substance: ERTUGLIFLOZIN PIDOLATE\METFORMIN HYDROCHLORIDE
     Indication: TYPE 2 DIABETES MELLITUS
     Dosage: 1-0-1
     Route: 048
     Dates: start: 20190701, end: 20190915
  3. ROSUVASTATIN. [Concomitant]
     Active Substance: ROSUVASTATIN
     Indication: HYPERLIPIDAEMIA
     Dosage: 0-0-1
     Dates: start: 201811

REACTIONS (1)
  - Eczema [Recovered/Resolved]

NARRATIVE: CASE EVENT DATE: 20190701
